FAERS Safety Report 6783401-6 (Version None)
Quarter: 2010Q2

REPORT INFORMATION
  Report Type: 
  Country: None (occurrence: None)
  Receive Date: 20100622
  Receipt Date: 20100614
  Transmission Date: 20101027
  Serious: Yes (Hospitalization)
  Sender: FDA-Public Use
  Company Number: PHHO2010KR08993

PATIENT
  Sex: Female
  Weight: 47.4 kg

DRUGS (3)
  1. TRILEPTAL [Suspect]
     Indication: PARTIAL SEIZURES
     Dosage: 1200 MG/DAY
     Route: 048
     Dates: start: 20100601, end: 20100608
  2. ZONISAMIDE [Concomitant]
  3. PREGABALIN [Concomitant]

REACTIONS (6)
  - CONVULSION [None]
  - FALL [None]
  - HAEMORRHAGE [None]
  - LIMB OPERATION [None]
  - LOSS OF CONSCIOUSNESS [None]
  - LOWER LIMB FRACTURE [None]
